FAERS Safety Report 5170754-8 (Version None)
Quarter: 2006Q4

REPORT INFORMATION
  Report Type: 
  Country: None (occurrence: None)
  Receive Date: 20060919
  Receipt Date: 20060622
  Transmission Date: 20070319
  Serious: No
  Sender: FDA-Public Use
  Company Number: BDI-008368

PATIENT
  Age: 19 Year
  Sex: Female

DRUGS (3)
  1. MULTIHANCE [Suspect]
     Indication: HYPERTENSION
     Dosage: 20 ML ONCE IV
     Route: 042
  2. MULTIHANCE [Suspect]
     Indication: NUCLEAR MAGNETIC RESONANCE IMAGING
     Dosage: 20 ML ONCE IV
     Route: 042
  3. MULTIHANCE [Suspect]
     Indication: RENAL DISORDER
     Dosage: 20 ML ONCE IV
     Route: 042

REACTIONS (1)
  - HYPERSENSITIVITY [None]
